FAERS Safety Report 8886436 (Version 3)
Quarter: 2012Q4

REPORT INFORMATION
  Report Type: 
  Country: JP (occurrence: JP)
  Receive Date: 20121105
  Receipt Date: 20121214
  Transmission Date: 20130627
  Serious: Yes (Disabling, Other)
  Sender: FDA-Public Use
  Company Number: JP-JNJFOC-20121017610

PATIENT
  Age: 73 Year
  Sex: Male
  Weight: 58 kg

DRUGS (12)
  1. XARELTO [Suspect]
     Indication: CEREBRAL ARTERY EMBOLISM
     Route: 048
     Dates: start: 20120829, end: 20120917
  2. XARELTO [Suspect]
     Indication: CEREBRAL ARTERY EMBOLISM
     Route: 048
     Dates: start: 20120721, end: 20120806
  3. TAKEPRON [Suspect]
     Indication: PRODUCT USED FOR UNKNOWN INDICATION
     Route: 048
  4. TAKEPRON [Suspect]
     Indication: PRODUCT USED FOR UNKNOWN INDICATION
     Route: 048
     Dates: start: 20120721, end: 20121022
  5. PLETAAL [Concomitant]
     Indication: PERIPHERAL ARTERIAL OCCLUSIVE DISEASE
     Route: 048
     Dates: start: 20120721, end: 20120806
  6. PLETAAL [Concomitant]
     Indication: PERIPHERAL ARTERIAL OCCLUSIVE DISEASE
     Route: 048
     Dates: start: 201209
  7. NESINA [Concomitant]
     Indication: DIABETES MELLITUS
     Route: 048
     Dates: start: 20120721, end: 20121106
  8. LIPITOR [Concomitant]
     Indication: DYSLIPIDAEMIA
     Route: 048
     Dates: start: 20120721, end: 20121105
  9. HEPARIN [Concomitant]
     Indication: CEREBRAL INFARCTION
     Dates: start: 20120702, end: 20120706
  10. EDARAVONE [Concomitant]
     Indication: CEREBRAL INFARCTION
     Dates: start: 20120702, end: 20120706
  11. FERO-GRADUMET [Concomitant]
     Indication: ANAEMIA
     Route: 048
     Dates: start: 20120721, end: 20120806
  12. AMLODIPINE [Concomitant]
     Route: 048
     Dates: start: 2010, end: 20121101

REACTIONS (2)
  - Tubulointerstitial nephritis [Not Recovered/Not Resolved]
  - Liver disorder [Recovered/Resolved]
